FAERS Safety Report 7038253-6 (Version None)
Quarter: 2010Q4

REPORT INFORMATION
  Report Type: 
  Country: None (occurrence: None)
  Receive Date: 20101011
  Receipt Date: 20090922
  Transmission Date: 20110411
  Serious: No
  Sender: FDA-Public Use
  Company Number: US-PFIZER INC-2009274807

PATIENT
  Sex: Male
  Weight: 43.091 kg

DRUGS (2)
  1. NEURONTIN [Suspect]
     Dosage: 100 MG, 1X/DAY
     Dates: start: 20090921
  2. THYROID TAB [Concomitant]
     Indication: HYPOTHYROIDISM
     Dosage: UNK

REACTIONS (3)
  - CONFUSIONAL STATE [None]
  - DIZZINESS [None]
  - HEADACHE [None]
